FAERS Safety Report 17996399 (Version 2)
Quarter: 2022Q3

REPORT INFORMATION
  Report Type: Spontaneous
  Country: US (occurrence: US)
  Receive Date: 20200708
  Receipt Date: 20220816
  Transmission Date: 20221027
  Serious: No
  Sender: FDA-Public Use
  Company Number: US-BIOGEN-2018BI00558369

PATIENT
  Age: 64 Year
  Sex: Female

DRUGS (2)
  1. TECFIDERA [Suspect]
     Active Substance: DIMETHYL FUMARATE
     Indication: Multiple sclerosis
     Dosage: MAINTENANCE DOSE
     Route: 050
     Dates: start: 20170623
  2. TECFIDERA [Suspect]
     Active Substance: DIMETHYL FUMARATE
     Route: 050
     Dates: start: 20170626, end: 20200722

REACTIONS (8)
  - Product dose omission issue [Unknown]
  - Gastrointestinal pain [Not Recovered/Not Resolved]
  - Gastric disorder [Unknown]
  - Abdominal pain lower [Unknown]
  - Epiretinal membrane [Unknown]
  - Multiple sclerosis [Unknown]
  - Oral discomfort [Unknown]
  - Nausea [Unknown]

NARRATIVE: CASE EVENT DATE: 20170630
